FAERS Safety Report 12078061 (Version 2)
Quarter: 2016Q2

REPORT INFORMATION
  Report Type: Spontaneous
  Country: GB (occurrence: GB)
  Receive Date: 20160215
  Receipt Date: 20160513
  Transmission Date: 20160815
  Serious: Yes (Hospitalization, Other)
  Sender: FDA-Public Use
  Company Number: GB-ALEXION PHARMACEUTICALS INC.-A201600681

PATIENT
  Age: 29 Year
  Sex: Male

DRUGS (2)
  1. KANUMA [Suspect]
     Active Substance: SEBELIPASE ALFA
     Indication: LYSOSOMAL ACID LIPASE DEFICIENCY
     Dosage: 60 MG, Q2W
     Route: 042
     Dates: start: 20150411
  2. KANUMA [Suspect]
     Active Substance: SEBELIPASE ALFA
     Dosage: 60 MG, Q2W
     Route: 042
     Dates: start: 20150411

REACTIONS (3)
  - Hepatic encephalopathy [Unknown]
  - Sepsis [Unknown]
  - Head injury [Unknown]

NARRATIVE: CASE EVENT DATE: 20160129
